FAERS Safety Report 8163896-6 (Version None)
Quarter: 2012Q1

REPORT INFORMATION
  Report Type: 
  Country: None (occurrence: None)
  Receive Date: 20120224
  Receipt Date: 20120213
  Transmission Date: 20120608
  Serious: Yes (Hospitalization)
  Sender: FDA-Public Use
  Company Number: DE-ELI_LILLY_AND_COMPANY-DE201111003996

PATIENT
  Age: 68 Year
  Sex: Male
  Weight: 63 kg

DRUGS (7)
  1. JONOSTERIL [Concomitant]
     Indication: BLOOD CREATININE ABNORMAL
     Dosage: UNK
     Dates: start: 20111110, end: 20111113
  2. FUROSEMIDE [Concomitant]
     Dosage: 40 MG, UNK
     Dates: start: 20111113, end: 20111115
  3. DOCETAXEL [Suspect]
     Indication: NON-SMALL CELL LUNG CANCER
     Dosage: 75 MG/M2, UNKNOWN
     Dates: start: 20111104, end: 20111104
  4. FUROSEMIDE [Concomitant]
     Indication: BLOOD CREATININE ABNORMAL
     Dosage: 40 MG, UNK
     Dates: start: 20111110, end: 20111110
  5. GEMCITABINE HYDROCHLORIDE [Suspect]
     Indication: NON-SMALL CELL LUNG CANCER
     Dosage: 1000 MG/M2, D1 AND 8 EVERY 3 WEEKS
     Dates: start: 20110920
  6. CETUXIMAB [Suspect]
     Indication: NON-SMALL CELL LUNG CANCER
     Dosage: 250 MG/M2, WEEKLY (1/W)
     Dates: start: 20110920, end: 20111104
  7. CETUXIMAB [Suspect]
     Dosage: 250 MG/M2, WEEKLY (1/W)
     Dates: start: 20111121

REACTIONS (1)
  - PNEUMONIA [None]
